FAERS Safety Report 22238657 (Version 1)
Quarter: 2023Q2

REPORT INFORMATION
  Report Type: Report from Study
  Country: ES (occurrence: ES)
  Receive Date: 20230421
  Receipt Date: 20230421
  Transmission Date: 20230722
  Serious: Yes (Life-Threatening, Hospitalization)
  Sender: FDA-Public Use
  Company Number: None

PATIENT
  Age: 57 Year
  Sex: Male

DRUGS (5)
  1. BISOPROLOL [Interacting]
     Active Substance: BISOPROLOL
     Indication: Suicide attempt
     Dosage: BISOPROLOL (2328A)
     Route: 065
     Dates: start: 20221123, end: 20221123
  2. METFORMIN [Interacting]
     Active Substance: METFORMIN HYDROCHLORIDE
     Indication: Suicide attempt
     Dosage: METFORMINA (1359A)
     Route: 065
     Dates: start: 20221123, end: 20221123
  3. ASPIRIN [Interacting]
     Active Substance: ASPIRIN
     Indication: Suicide attempt
     Dosage: ACETILSALICILICO ACIDO (176A)
     Route: 065
     Dates: start: 20221123, end: 20221123
  4. INSULIN GLARGINE [Interacting]
     Active Substance: INSULIN GLARGINE
     Indication: Suicide attempt
     Dosage: INSULINA GLARGINA (1165A)
     Route: 065
     Dates: start: 20221123, end: 20221123
  5. INSULIN ASPART [Interacting]
     Active Substance: INSULIN ASPART
     Indication: Suicide attempt
     Dosage: INSULINA ASPARTA (1123A)
     Route: 065
     Dates: start: 20221123, end: 20221123

REACTIONS (4)
  - Hypoglycaemia [Recovered/Resolved]
  - Acute kidney injury [Recovered/Resolved]
  - Hypoglycaemic coma [Recovered/Resolved]
  - Drug interaction [Unknown]

NARRATIVE: CASE EVENT DATE: 20221123
